FAERS Safety Report 5750209-X (Version None)
Quarter: 2008Q2

REPORT INFORMATION
  Report Type: 
  Country: None (occurrence: None)
  Receive Date: 20080527
  Receipt Date: 20080515
  Transmission Date: 20081010
  Serious: Yes (Other)
  Sender: FDA-Public Use
  Company Number: US-PFIZER INC-2008043043

PATIENT
  Sex: Female
  Weight: 77.1 kg

DRUGS (5)
  1. CHANTIX [Suspect]
     Indication: SMOKING CESSATION THERAPY
  2. ADVAIR DISKUS 100/50 [Concomitant]
  3. MONTELUKAST SODIUM [Concomitant]
  4. ETANERCEPT [Concomitant]
  5. IRON [Concomitant]

REACTIONS (1)
  - HYPOAESTHESIA FACIAL [None]
